FAERS Safety Report 4947605-7 (Version None)
Quarter: 2006Q1

REPORT INFORMATION
  Report Type: 
  Country: None (occurrence: None)
  Receive Date: 20060320
  Receipt Date: 20060307
  Transmission Date: 20060701
  Serious: Yes (Other)
  Sender: FDA-Public Use
  Company Number: US-JNJFOC-20060303986

PATIENT
  Age: 47 Year
  Sex: Male

DRUGS (16)
  1. GALANTAMINE HYDROBROMIDE [Suspect]
  2. GALANTAMINE HYDROBROMIDE [Suspect]
     Indication: DRUG USE FOR UNKNOWN INDICATION
  3. ARIPIPRAZOLE [Concomitant]
  4. QUETIAPINE [Concomitant]
  5. LITHIUM [Concomitant]
  6. BENZTROPINE MESYLATE [Concomitant]
  7. TRAZODONE [Concomitant]
     Indication: SLEEP DISORDER
  8. ASPIRIN [Concomitant]
  9. DOCUSATE [Concomitant]
  10. ENALAPRIL MALEATE [Concomitant]
  11. INSULIN [Concomitant]
  12. LACTULOSE [Concomitant]
  13. METOPROLOL [Concomitant]
  14. RANITIDINE [Concomitant]
  15. SIMVASTIN [Concomitant]
  16. VITAMIN E [Concomitant]

REACTIONS (2)
  - ASTHENIA [None]
  - ELECTROCARDIOGRAM QT CORRECTED INTERVAL PROLONGED [None]
